FAERS Safety Report 8390510-7 (Version None)
Quarter: 2012Q2

REPORT INFORMATION
  Report Type: 
  Country: None (occurrence: None)
  Receive Date: 20120517
  Receipt Date: 20120504
  Transmission Date: 20120825
  Serious: Yes (Hospitalization)
  Sender: FDA-Public Use
  Company Number: 2012SP021142

PATIENT
  Age: 44 Year
  Sex: Female
  Weight: 53.95 kg

DRUGS (16)
  1. ACIDOPHILIS [Concomitant]
  2. DESLORATADINE [Concomitant]
  3. CYPROHEPTADINE HCL [Concomitant]
  4. GS-5885 (INVESTIGATIONAL DRUG) [Suspect]
     Indication: HEPATITIS C
     Dosage: 30 MG;QD;PO
     Route: 048
     Dates: start: 20120125, end: 20120331
  5. POLARAMINE [Concomitant]
  6. EUMOVATE [Concomitant]
  7. GS-9451 (INVESTIGATIONAL DRUG) [Suspect]
     Indication: HEPATITIS C
     Dosage: 200 MG;QD;PO
     Route: 048
     Dates: start: 20120125, end: 20120331
  8. METOCLOPRAMIDE [Concomitant]
  9. LORATADINE [Concomitant]
  10. RIBAVIRIN [Suspect]
     Indication: HEPATITIS C
     Dosage: 1000 MG;QW;PO
     Route: 048
     Dates: start: 20120125, end: 20120331
  11. PEGINTERFERON ALFA-2A [Suspect]
     Indication: HEPATITIS C
     Dosage: 180 MCG;QW;SC
     Route: 058
     Dates: start: 20120125, end: 20120328
  12. ACETAMINOPHEN [Concomitant]
  13. LYSINE [Concomitant]
  14. PINETARSOL [Concomitant]
  15. MINTEC [Concomitant]
  16. PHENERGAN [Concomitant]

REACTIONS (14)
  - RASH [None]
  - DIZZINESS [None]
  - CONVULSION [None]
  - VITREOUS FLOATERS [None]
  - FATIGUE [None]
  - NEUTROPENIA [None]
  - WHITE BLOOD CELL COUNT DECREASED [None]
  - HAEMATOCRIT DECREASED [None]
  - SWELLING FACE [None]
  - VISION BLURRED [None]
  - DYSPNOEA [None]
  - HAEMOGLOBIN DECREASED [None]
  - PHARYNGEAL OEDEMA [None]
  - ASTHENIA [None]
